FAERS Safety Report 7569579-5 (Version None)
Quarter: 2011Q2

REPORT INFORMATION
  Report Type: 
  Country: None (occurrence: None)
  Receive Date: 20110621
  Receipt Date: 20110621
  Transmission Date: 20111010
  Serious: Yes (Hospitalization)
  Sender: FDA-Public Use
  Company Number: None

PATIENT
  Sex: Male
  Weight: 68.0396 kg

DRUGS (5)
  1. NEULASTA [Suspect]
  2. VINBLASTINE SULFATE [Suspect]
     Dosage: NEULASTA ON DAY 2
  3. METHOTREXATE [Suspect]
     Indication: INVESTIGATION
     Dosage: CHEMO-ONCE EVERY 2 WEEKS
  4. DOXORUBICIN HCL [Suspect]
  5. CISPLATIN [Suspect]

REACTIONS (2)
  - PULMONARY EMBOLISM [None]
  - ABDOMINAL PAIN [None]
